FAERS Safety Report 23717680 (Version 1)
Quarter: 2024Q2

REPORT INFORMATION
  Report Type: Spontaneous
  Country: IN (occurrence: IN)
  Receive Date: 20240408
  Receipt Date: 20240408
  Transmission Date: 20240716
  Serious: Yes (Death, Hospitalization)
  Sender: FDA-Public Use
  Company Number: IN-MYLANLABS-2024M1030558

PATIENT
  Age: 4 Year
  Sex: Female

DRUGS (2)
  1. CARBOPLATIN [Suspect]
     Active Substance: CARBOPLATIN
     Indication: Squamous cell carcinoma of skin
     Dosage: 3 WEEKLY CARBOPLATIN (AREA UNDER CURVE = 6)  [SIC]
     Route: 065
  2. PACLITAXEL [Suspect]
     Active Substance: PACLITAXEL
     Indication: Squamous cell carcinoma of skin
     Dosage: 175 MILLIGRAM/SQ. METER, 3 WEEKLY [SIC]
     Route: 065

REACTIONS (8)
  - Diarrhoea [Fatal]
  - Acute kidney injury [Fatal]
  - Hepatotoxicity [Fatal]
  - Metabolic acidosis [Fatal]
  - Coagulopathy [Fatal]
  - Acute hepatic failure [Fatal]
  - Haemodynamic instability [Fatal]
  - Off label use [Unknown]
